FAERS Safety Report 23069024 (Version 2)
Quarter: 2023Q4

REPORT INFORMATION
  Report Type: Report from Study
  Country: IN (occurrence: IN)
  Receive Date: 20231016
  Receipt Date: 20231020
  Transmission Date: 20240109
  Serious: Yes (Life-Threatening, Hospitalization)
  Sender: FDA-Public Use
  Company Number: IN-002147023-NVSC2023IN221852

PATIENT
  Sex: Male

DRUGS (3)
  1. CERTICAN [Suspect]
     Active Substance: EVEROLIMUS
     Indication: Liver transplant
     Dosage: 1.25 MG, BID
     Route: 048
     Dates: start: 20230925
  2. CERTICAN [Suspect]
     Active Substance: EVEROLIMUS
     Dosage: 2.25 MG, QD (1 MG IN MORNING AND 1.25 MG IN THE EVENING)
     Route: 048
     Dates: start: 20230929
  3. TACROLIMUS [Suspect]
     Active Substance: TACROLIMUS
     Indication: Liver transplant
     Route: 048

REACTIONS (1)
  - Illness [Unknown]
